FAERS Safety Report 14317614 (Version 1)
Quarter: 2017Q4

REPORT INFORMATION
  Report Type: Spontaneous
  Country: IT (occurrence: IT)
  Receive Date: 20171222
  Receipt Date: 20171222
  Transmission Date: 20180321
  Serious: Yes (Life-Threatening)
  Sender: FDA-Public Use
  Company Number: IT-CIPLA LTD.-2017IT27220

PATIENT

DRUGS (4)
  1. DEPAKIN [Interacting]
     Active Substance: VALPROATE SODIUM
     Indication: SCHIZOAFFECTIVE DISORDER
     Dosage: 600 MG, QD
     Route: 048
  2. SERTRALINE [Suspect]
     Active Substance: SERTRALINE HYDROCHLORIDE
     Indication: SCHIZOPHRENIA
     Dosage: 100 MG, QD
     Route: 048
  3. CLOZAPINE. [Interacting]
     Active Substance: CLOZAPINE
     Dosage: 600 MG, QD
     Route: 048
  4. ANDROCUR [Interacting]
     Active Substance: CYPROTERONE ACETATE
     Indication: SCHIZOPHRENIA
     Dosage: 100 MG, QD
     Route: 048

REACTIONS (3)
  - Drug interaction [Recovered/Resolved with Sequelae]
  - Pulmonary embolism [Recovered/Resolved with Sequelae]
  - Pulmonary hypertension [Recovered/Resolved with Sequelae]

NARRATIVE: CASE EVENT DATE: 20170421
